FAERS Safety Report 4675854-4 (Version None)
Quarter: 2005Q2

REPORT INFORMATION
  Report Type: 
  Country: None (occurrence: None)
  Receive Date: 20050525
  Receipt Date: 20050510
  Transmission Date: 20051028
  Serious: Yes (Death)
  Sender: FDA-Public Use
  Company Number: GBR-2005-0001686

PATIENT
  Sex: Male

DRUGS (22)
  1. OXYCODONE HCL [Suspect]
     Dosage: 29 MG, BID;
  2. DILTIAZEM HCL [Suspect]
     Dosage: 60 MIG, BID;
  3. METOCLOPRAMIDE (METOCLOPRAMIDE, METOCLOPRAMIDE) [Suspect]
     Dosage: 10 MG, TID;
  4. COMBIVENT [Suspect]
     Dosage: UNK, QID, INHALATION
     Route: 055
  5. SPIRIVA [Suspect]
     Dosage: 18 MCG, UNK, INHALATION
     Route: 055
  6. SALBUTAMOL (SALBUTAMOL) [Suspect]
     Dosage: 100 MCG, BIG PRN, INHALATION
     Route: 055
  7. ASPIRIN [Suspect]
     Dosage: 75 MG, DAILY, UNKNOWN
  8. ATORVASTATIN CALCIUM [Suspect]
     Dosage: 10 MG, DAILY,
  9. BECLOMETHASONE DIPROPIONATE [Suspect]
     Dosage: 50 MCG, BID; INHALATION
     Route: 055
  10. FRUMIL (AMILORIDE HYDROCHLORIDE, FUROSEMIDE) [Suspect]
     Dosage: UNK
  11. DEXAMETHASONE [Suspect]
     Dosage: 2 MG, DAILY;
  12. DOTHIEPIN HYDROCHLORIDE [Suspect]
     Dosage: 75 MG, NOCTE;
  13. FUROSEMIDE [Suspect]
     Dosage: 80 MG, DAILY,
  14. GAVISCON [Suspect]
     Dosage: 10 ML, QID,
  15. LACTULOSE [Suspect]
     Dosage: 3.35 G/5 ML, DAILY,
  16. LANSOPRAZOLE [Suspect]
     Dosage: 30 MG, DAILY
  17. NITROLINGUAL (GLYCERYL TRINITRATE) [Suspect]
     Dosage: 400 MG,
  18. NOZINAN (LEVOMEPROMAZINE) [Suspect]
     Dosage: 25 MG, QID;
  19. OXYGEN (OXYGEN) [Suspect]
  20. SPIRONOLACTONE [Suspect]
     Dosage: 50 MG,
  21. SYMBICORT (FORMOTEROL) [Suspect]
     Dosage: 1-2 PUFF'S BID, INHALATION
     Route: 055
  22. TEMAZEPAM [Suspect]
     Dosage: 10 MG 1-2  NOCTE,

REACTIONS (1)
  - LUNG NEOPLASM MALIGNANT [None]
